FAERS Safety Report 8208601-X (Version None)
Quarter: 2012Q1

REPORT INFORMATION
  Report Type: 
  Country: None (occurrence: None)
  Receive Date: 20120314
  Receipt Date: 20120211
  Transmission Date: 20120608
  Serious: Yes (Other)
  Sender: FDA-Public Use
  Company Number: TR-GLAXOSMITHKLINE-B0787232A

PATIENT
  Age: 51 Year
  Sex: Male

DRUGS (1)
  1. BECLOMETHASONE DIPROPIONATE [Suspect]
     Indication: CHRONIC OBSTRUCTIVE PULMONARY DISEASE
     Route: 055

REACTIONS (1)
  - OSTEOPOROSIS [None]
